FAERS Safety Report 8822555 (Version 2)
Quarter: 2012Q4

REPORT INFORMATION
  Report Type: 
  Country: CN (occurrence: CN)
  Receive Date: 20121003
  Receipt Date: 20121211
  Transmission Date: 20130627
  Serious: Yes (Other)
  Sender: FDA-Public Use
  Company Number: CN-ABBOTT-12P-035-0988189-00

PATIENT
  Age: 10 Year
  Sex: Male

DRUGS (2)
  1. DEPAKINE [Suspect]
     Indication: EPILEPSY
     Dosage: Extended release
     Route: 048
     Dates: start: 201203, end: 201209
  2. DEPAKINE [Suspect]
     Dosage: Extended release
     Route: 048
     Dates: start: 201209

REACTIONS (6)
  - Product counterfeit [Unknown]
  - Foaming at mouth [Unknown]
  - Loss of consciousness [Unknown]
  - Epilepsy [Recovered/Resolved]
  - Convulsion [Unknown]
  - Alopecia [Unknown]
